FAERS Safety Report 23252329 (Version 2)
Quarter: 2024Q2

REPORT INFORMATION
  Report Type: Spontaneous
  Country: CA (occurrence: CA)
  Receive Date: 20231201
  Receipt Date: 20240408
  Transmission Date: 20240716
  Serious: Yes (Other)
  Sender: FDA-Public Use
  Company Number: CA-FreseniusKabi-FK202319442

PATIENT
  Age: 55 Year
  Sex: Female

DRUGS (15)
  1. FOLIC ACID [Suspect]
     Active Substance: FOLIC ACID
     Indication: Product used for unknown indication
     Dosage: DOSAGE FORM: NOT SPECIFIED?ROUTE:UNKNOWN
  2. INFLECTRA [Suspect]
     Active Substance: INFLIXIMAB-DYYB
     Indication: Colitis ulcerative
     Dosage: DOSAGE FORM: POWDER FOR SOLUTION INTRAVENOUS?ROUTE: INTRAVENOUS
  3. INFLECTRA [Suspect]
     Active Substance: INFLIXIMAB-DYYB
     Dosage: DOSAGE FORM: POWDER FOR SOLUTION INTRAVENOUS?ROUTE: INTRAVENOUS
  4. INFLECTRA [Suspect]
     Active Substance: INFLIXIMAB-DYYB
     Dosage: DOSAGE FORM: POWDER FOR INJECTION?ROUTE: INTRAVENOUS
  5. INFLECTRA [Suspect]
     Active Substance: INFLIXIMAB-DYYB
     Dosage: DOSAGE FORM: POWDER FOR SOLUTION INTRAVENOUS?ROUTE: INTRAVENOUS
  6. LEUCOVORIN CALCIUM [Suspect]
     Active Substance: LEUCOVORIN CALCIUM
     Indication: Product used for unknown indication
     Dosage: ROUTE: UNKNWON
  7. LEUCOVORIN CALCIUM [Suspect]
     Active Substance: LEUCOVORIN CALCIUM
     Dosage: ROUTE: UNKNWON
  8. METHOTREXATE SODIUM [Suspect]
     Active Substance: METHOTREXATE SODIUM
     Indication: Product used for unknown indication
     Dosage: TABLET?ORAL
  9. MESALAMINE [Suspect]
     Active Substance: MESALAMINE
     Indication: Product used for unknown indication
     Dosage: TABLET?UNKNOWN?TABLET (DELAYED AND EXTENDED RELEASE)
  10. MESALAMINE [Suspect]
     Active Substance: MESALAMINE
     Dosage: TABLET?UNKNOWN?TABLET (DELAYED AND EXTENDED RELEASE)
  11. PREDNISONE [Suspect]
     Active Substance: PREDNISONE
     Indication: Product used for unknown indication
     Dosage: DOSAGE: NOT SPECIFIED?ROUTE: UNKNOWN
  12. SYNTHROID [Suspect]
     Active Substance: LEVOTHYROXINE SODIUM
     Indication: Product used for unknown indication
     Dosage: DOSAGE: NOT SPECIFIED?ROUTE: UNKNOWN?EVERY ONE DAYS
  13. VITAMIN D [Suspect]
     Active Substance: VITAMIN D NOS
     Indication: Product used for unknown indication
     Dosage: ROUTE: UNKNOWN?EVERY ONE DAYS
  14. VITAMIN D [Suspect]
     Active Substance: VITAMIN D NOS
     Dosage: FOA: CAPSULES?ROUTE: UNKNOWN
  15. METHOTREXATE [Suspect]
     Active Substance: METHOTREXATE
     Indication: Product used for unknown indication
     Dosage: TABLET?ORAL

REACTIONS (3)
  - Lung disorder [Unknown]
  - Mental impairment [Unknown]
  - Stress [Unknown]
